FAERS Safety Report 10273971 (Version 1)
Quarter: 2014Q3

REPORT INFORMATION
  Report Type: Spontaneous
  Country: US (occurrence: US)
  Receive Date: 20140702
  Receipt Date: 20140702
  Transmission Date: 20150326
  Serious: Yes (Death, Hospitalization, Other)
  Sender: FDA-Public Use
  Company Number: US-BRISTOL-MYERS SQUIBB COMPANY-21079215

PATIENT
  Age: 84 Year
  Sex: Female
  Weight: 90.7 kg

DRUGS (6)
  1. METOPROLOL [Concomitant]
     Active Substance: METOPROLOL
  2. PRILOSEC [Concomitant]
     Active Substance: OMEPRAZOLE MAGNESIUM
     Dosage: 1DF=20UNITSNOS
  3. ZETIA [Concomitant]
     Active Substance: EZETIMIBE
  4. ASPIRIN. [Suspect]
     Active Substance: ASPIRIN
     Indication: ANTIPLATELET THERAPY
  5. ELIQUIS [Suspect]
     Active Substance: APIXABAN
     Indication: CEREBROVASCULAR ACCIDENT PROPHYLAXIS
     Dates: start: 201403
  6. CRESTOR [Concomitant]
     Active Substance: ROSUVASTATIN CALCIUM
     Dosage: 1DF=40UNITS NOS

REACTIONS (4)
  - Fall [Unknown]
  - International normalised ratio increased [Unknown]
  - Hip fracture [Unknown]
  - Coronary artery thrombosis [Fatal]

NARRATIVE: CASE EVENT DATE: 201405
